FAERS Safety Report 23599639 (Version 3)
Quarter: 2024Q1

REPORT INFORMATION
  Report Type: Spontaneous
  Country: DE (occurrence: DE)
  Receive Date: 20240306
  Receipt Date: 20240327
  Transmission Date: 20240410
  Serious: Yes (Hospitalization, Other)
  Sender: FDA-Public Use
  Company Number: DE-BRISTOL-MYERS SQUIBB COMPANY-2024-034446

PATIENT
  Age: 77 Year
  Sex: Male

DRUGS (8)
  1. OPDIVO [Suspect]
     Active Substance: NIVOLUMAB
     Indication: Oesophageal carcinoma
     Route: 042
     Dates: start: 20231227, end: 20231227
  2. OPDIVO [Suspect]
     Active Substance: NIVOLUMAB
     Dosage: ONCE
     Dates: end: 20240102
  3. APIXABAN [Suspect]
     Active Substance: APIXABAN
     Indication: Product used for unknown indication
  4. ESOMEPRAZOLE [Concomitant]
     Active Substance: ESOMEPRAZOLE
     Indication: Product used for unknown indication
  5. SPASMEX [PHLOROGLUCINOL] [Concomitant]
     Indication: Product used for unknown indication
     Dosage: SPASMEX (TROSPIUM) 15 MG 1-1-1
  6. BISOPROLOL [Concomitant]
     Active Substance: BISOPROLOL\BISOPROLOL FUMARATE
     Indication: Product used for unknown indication
  7. PANTOPRAZOLE [Concomitant]
     Active Substance: PANTOPRAZOLE
     Indication: Product used for unknown indication
     Dosage: BEFORE MEALS
  8. SOLIFENACIN SUCCINATE [Concomitant]
     Active Substance: SOLIFENACIN SUCCINATE
     Indication: Product used for unknown indication
     Dosage: INDEPENDENT FROM MEALS

REACTIONS (4)
  - Urinary incontinence [Recovering/Resolving]
  - Peripheral sensory neuropathy [Recovering/Resolving]
  - Facial paralysis [Recovering/Resolving]
  - Encephalomyelitis [Recovering/Resolving]

NARRATIVE: CASE EVENT DATE: 20231228
